FAERS Safety Report 8197547-1 (Version None)
Quarter: 2012Q1

REPORT INFORMATION
  Report Type: 
  Country: None (occurrence: None)
  Receive Date: 20120309
  Receipt Date: 20120228
  Transmission Date: 20120608
  Serious: Yes (Hospitalization)
  Sender: FDA-Public Use
  Company Number: FR-ROCHE-1000648

PATIENT
  Sex: Male
  Weight: 84 kg

DRUGS (6)
  1. IRBESARTAN [Concomitant]
     Indication: HYPERTENSION
     Dates: start: 20101001
  2. NEBIVOLOL HCL [Concomitant]
     Indication: HYPERTENSION
  3. LERCANIDIPINE [Concomitant]
     Indication: HYPERTENSION
     Dates: end: 20110922
  4. FUROSEMIDE [Concomitant]
     Indication: HYPERTENSION
  5. MIRCERA [Suspect]
     Indication: ANAEMIA
     Route: 058
     Dates: start: 20110817, end: 20110924
  6. EUPRESSYL [Concomitant]
     Indication: HYPERTENSION
     Dates: end: 20110922

REACTIONS (1)
  - CONVULSION [None]
